FAERS Safety Report 9746787 (Version 1)
Quarter: 2013Q4

REPORT INFORMATION
  Report Type: Spontaneous
  Country: CA (occurrence: CA)
  Receive Date: 20131211
  Receipt Date: 20131211
  Transmission Date: 20140711
  Serious: Yes (Other)
  Sender: FDA-Public Use
  Company Number: CHPA2013CA018181

PATIENT
  Age: 37 Year
  Sex: Female

DRUGS (3)
  1. HABITROL [Suspect]
     Indication: SMOKING CESSATION THERAPY
     Dosage: 14 MG, QD
     Route: 062
  2. HABITROL [Suspect]
     Dosage: 14 MG, QD
     Route: 062
  3. HABITROL [Suspect]
     Dosage: 21 MG, QD
     Route: 062

REACTIONS (3)
  - Multiple sclerosis [Not Recovered/Not Resolved]
  - Pruritus generalised [Not Recovered/Not Resolved]
  - Incorrect drug administration duration [Unknown]
